FAERS Safety Report 5354035-5 (Version None)
Quarter: 2007Q2

REPORT INFORMATION
  Report Type: 
  Country: None (occurrence: None)
  Receive Date: 20070612
  Receipt Date: 20070531
  Transmission Date: 20071010
  Serious: No
  Sender: FDA-Public Use
  Company Number: US-ASTRAZENECA-2006UW08076

PATIENT
  Age: 544 Month
  Sex: Male
  Weight: 93.2 kg

DRUGS (3)
  1. SEROQUEL [Suspect]
     Indication: BIPOLAR DISORDER
     Route: 048
     Dates: start: 20030503
  2. DEPAKOTE [Concomitant]
  3. REMERON [Concomitant]

REACTIONS (1)
  - DIABETES MELLITUS [None]
